FAERS Safety Report 7111561-6 (Version None)
Quarter: 2010Q4

REPORT INFORMATION
  Report Type: 
  Country: None (occurrence: None)
  Receive Date: 20101118
  Receipt Date: 20100628
  Transmission Date: 20110411
  Serious: No
  Sender: FDA-Public Use
  Company Number: US-PFIZER INC-2010081204

PATIENT
  Sex: Female
  Weight: 81.633 kg

DRUGS (6)
  1. ZYVOX [Suspect]
     Indication: OSTEOMYELITIS ACUTE
     Dosage: 600 MG, 2X/DAY
     Route: 048
     Dates: start: 20100626
  2. DARIFENACIN [Concomitant]
     Indication: MUSCLE RELAXANT THERAPY
     Dosage: UNK
  3. FLEXERIL [Concomitant]
     Indication: MUSCLE RELAXANT THERAPY
     Dosage: UNK
  4. ATENOLOL [Concomitant]
     Indication: MIGRAINE
     Dosage: UNK
  5. PREMARIN [Concomitant]
     Dosage: UNK
  6. PROVERA [Concomitant]
     Dosage: UNK

REACTIONS (2)
  - DYSGEUSIA [None]
  - VOMITING [None]
